FAERS Safety Report 6657760-9 (Version None)
Quarter: 2010Q1

REPORT INFORMATION
  Report Type: 
  Country: None (occurrence: None)
  Receive Date: 20100330
  Receipt Date: 20100222
  Transmission Date: 20100710
  Serious: No
  Sender: FDA-Public Use
  Company Number: US-TYCO HEALTHCARE/MALLINCKRODT-T201000705

PATIENT
  Sex: Male

DRUGS (2)
  1. METHADOSE [Suspect]
     Dosage: UNK
  2. OXYCONTIN [Concomitant]
     Dosage: UNK

REACTIONS (1)
  - DRUG SCREEN POSITIVE [None]
